FAERS Safety Report 6136672-3 (Version None)
Quarter: 2009Q1

REPORT INFORMATION
  Report Type: 
  Country: None (occurrence: None)
  Receive Date: 20090325
  Receipt Date: 20090310
  Transmission Date: 20090719
  Serious: Yes (Death)
  Sender: FDA-Public Use
  Company Number: DSA_81494_2005

PATIENT
  Age: 44 Year
  Sex: Male
  Weight: 124.7392 kg

DRUGS (5)
  1. XYREM [Suspect]
     Indication: INSOMNIA
     Dosage: 8 GM (4 GM, 2 IN 1 D), ORAL; 7 GM (3.5 GM, 2 IN 1 D), ORAL
     Route: 048
     Dates: end: 20051108
  2. XYREM [Suspect]
     Indication: INSOMNIA
     Dosage: 8 GM (4 GM, 2 IN 1 D), ORAL; 7 GM (3.5 GM, 2 IN 1 D), ORAL
     Route: 048
     Dates: start: 20050921
  3. ALPRAZOLAM [Suspect]
     Indication: GENERALISED ANXIETY DISORDER
     Dosage: (0.5-1 MG)
  4. NORDIAZEPAM [Suspect]
     Indication: DRUG USE FOR UNKNOWN INDICATION
  5. QUETIAPINE [Suspect]
     Indication: DRUG USE FOR UNKNOWN INDICATION

REACTIONS (9)
  - ASPHYXIA [None]
  - COGNITIVE DISORDER [None]
  - DRUG INTERACTION [None]
  - DRUG LEVEL BELOW THERAPEUTIC [None]
  - OVERDOSE [None]
  - PRODUCT QUALITY ISSUE [None]
  - RESPIRATORY ARREST [None]
  - SLEEP APNOEA SYNDROME [None]
  - SLEEP PARALYSIS [None]
